FAERS Safety Report 13108080 (Version 2)
Quarter: 2017Q1

REPORT INFORMATION
  Report Type: Spontaneous
  Country: US (occurrence: US)
  Receive Date: 20170112
  Receipt Date: 20170301
  Transmission Date: 20170428
  Serious: Yes (Other)
  Sender: FDA-Public Use
  Company Number: US-PFIZER INC-2017008895

PATIENT
  Sex: Female
  Weight: 58 kg

DRUGS (5)
  1. LOVASTATIN. [Concomitant]
     Active Substance: LOVASTATIN
     Indication: BLOOD CHOLESTEROL INCREASED
     Dosage: UNK
  2. IBRANCE [Suspect]
     Active Substance: PALBOCICLIB
     Indication: NEOPLASM MALIGNANT
     Dosage: 125 MG, 1X/DAY (IN  THE MORNING WITH 8 OUNCES OF WATER)
     Dates: start: 201603
  3. ATENOLOL. [Concomitant]
     Active Substance: ATENOLOL
     Indication: HYPERTENSION
     Dosage: 25 MG, 1X/DAY
  4. FULVESTRANT [Concomitant]
     Active Substance: FULVESTRANT
     Indication: HORMONE THERAPY
     Dosage: 2 INJECTIONS, MONTHLY (EVERY 4 WEEKS)
  5. HYDROCHLOROTHIAZIDE. [Concomitant]
     Active Substance: HYDROCHLOROTHIAZIDE
     Dosage: UNK

REACTIONS (4)
  - Intra-abdominal fluid collection [Unknown]
  - Neoplasm progression [Unknown]
  - Renal hypertrophy [Unknown]
  - Pneumonia [Unknown]
